FAERS Safety Report 9583804 (Version 1)
Quarter: 2013Q4

REPORT INFORMATION
  Report Type: Spontaneous
  Country: US (occurrence: US)
  Receive Date: 20131002
  Receipt Date: 20131002
  Transmission Date: 20140711
  Serious: No
  Sender: FDA-Public Use
  Company Number: US-AMGEN-USASP2013049525

PATIENT
  Age: 54 Year
  Sex: Female

DRUGS (1)
  1. ENBREL [Suspect]
     Indication: PSORIASIS
     Dosage: 50 MG, QWK
     Route: 065
     Dates: start: 20130401, end: 20130626

REACTIONS (4)
  - Contusion [Recovered/Resolved]
  - Headache [Recovered/Resolved]
  - Menopause [Not Recovered/Not Resolved]
  - Night sweats [Not Recovered/Not Resolved]
